FAERS Safety Report 18858187 (Version 1)
Quarter: 2021Q1

REPORT INFORMATION
  Report Type: Spontaneous
  Country: US (occurrence: US)
  Receive Date: 20210206
  Receipt Date: 20210206
  Transmission Date: 20210420
  Serious: Yes (Other)
  Sender: FDA-Public Use
  Company Number: None

PATIENT
  Age: 28 Year
  Sex: Female
  Weight: 84.15 kg

DRUGS (9)
  1. LAMOTRIGINE. [Concomitant]
     Active Substance: LAMOTRIGINE
  2. FAMOTIDINE. [Concomitant]
     Active Substance: FAMOTIDINE
  3. BENZOYL PEROXIDE. [Concomitant]
     Active Substance: BENZOYL PEROXIDE
  4. MELATONIN [Concomitant]
     Active Substance: MELATONIN
  5. CLINDAMYCIN LOTION [Concomitant]
  6. MODERNA COVID?19 VACCINE [Suspect]
     Active Substance: CX-024414
     Indication: ACNE
     Route: 058
     Dates: start: 20210130
  7. SPIRONOLACTONE 50MG [Suspect]
     Active Substance: SPIRONOLACTONE
  8. PALIPERIDONE. [Concomitant]
     Active Substance: PALIPERIDONE
  9. MONTELUKAST [Concomitant]
     Active Substance: MONTELUKAST SODIUM

REACTIONS (2)
  - Pruritus [None]
  - Erythema [None]

NARRATIVE: CASE EVENT DATE: 20210206
